FAERS Safety Report 21307831 (Version 1)
Quarter: 2022Q3

REPORT INFORMATION
  Report Type: Spontaneous
  Country: US (occurrence: US)
  Receive Date: 20220908
  Receipt Date: 20220908
  Transmission Date: 20221027
  Serious: No
  Sender: FDA-Public Use
  Company Number: US-MYLANLABS-2022M1079799

PATIENT
  Sex: Female

DRUGS (2)
  1. ESTRADIOL TRANSDERMAL SYSTEM [Suspect]
     Active Substance: ESTRADIOL
     Indication: Hormone replacement therapy
     Dosage: 0.1 MILLIGRAM, QD (ONCE A WEEK)
     Route: 062
  2. ESTRADIOL TRANSDERMAL SYSTEM [Suspect]
     Active Substance: ESTRADIOL
     Indication: Hormone replacement therapy
     Dosage: 0.75 MILLIGRAM (TWICE A WEEK)
     Route: 062

REACTIONS (4)
  - Drug ineffective [Unknown]
  - Application site rash [Unknown]
  - Product adhesion issue [Unknown]
  - Product tampering [Unknown]
